FAERS Safety Report 9180016 (Version 2)
Quarter: 2013Q2

REPORT INFORMATION
  Report Type: Spontaneous
  Country: US (occurrence: US)
  Receive Date: 20121029
  Receipt Date: 20130516
  Transmission Date: 20140414
  Serious: Yes (Disabling, Other)
  Sender: FDA-Public Use
  Company Number: US-CELGENEUS-163-20785-12102837

PATIENT
  Age: 48 Year
  Sex: Female

DRUGS (1)
  1. THALOMID [Suspect]
     Indication: LICHENIFICATION
     Dosage: 50 MILLIGRAM
     Route: 048
     Dates: start: 20120716, end: 20121019

REACTIONS (4)
  - Hypercoagulation [Unknown]
  - Renal failure [Unknown]
  - Venous thrombosis [Recovered/Resolved with Sequelae]
  - Pruritus [Unknown]
